FAERS Safety Report 20059117 (Version 3)
Quarter: 2021Q4

REPORT INFORMATION
  Report Type: Report from Study
  Country: IL (occurrence: None)
  Receive Date: 20211111
  Receipt Date: 20211122
  Transmission Date: 20220303
  Serious: Yes (Death, Hospitalization)
  Sender: FDA-Public Use
  Company Number: IL-ROCHE-2950479

PATIENT
  Age: 90 Year
  Sex: Male
  Weight: 77.3 kg

DRUGS (3)
  1. MOSUNETUZUMAB [Suspect]
     Active Substance: MOSUNETUZUMAB
     Indication: Diffuse large B-cell lymphoma
     Dosage: START AND END DATE OF MOST RECENT DOSE ( 5 MG) OF STUDY DRUG PRIOR TO AE 01/SEP/2021 2:38 PM, START
     Route: 058
     Dates: start: 20210901
  2. POLATUZUMAB VEDOTIN [Suspect]
     Active Substance: POLATUZUMAB VEDOTIN
     Indication: Diffuse large B-cell lymphoma
     Dosage: START DATE OF MOST RECENT DOSE (140 MG ) OF STUDY DRUG PRIOR TO AE 01-SEP-2021, START DATE OF MOST R
     Route: 042
     Dates: start: 20210901
  3. ACETAMINOPHEN [Concomitant]
     Active Substance: ACETAMINOPHEN
     Route: 048
     Dates: start: 20210909, end: 20210909

REACTIONS (1)
  - Staphylococcal bacteraemia [Fatal]

NARRATIVE: CASE EVENT DATE: 20211101
